FAERS Safety Report 6370853-9 (Version None)
Quarter: 2009Q3

REPORT INFORMATION
  Report Type: 
  Country: None (occurrence: None)
  Receive Date: 20090923
  Receipt Date: 20070905
  Transmission Date: 20100115
  Serious: Yes (Hospitalization)
  Sender: FDA-Public Use
  Company Number: US-ASTRAZENECA-2006UW24780

PATIENT
  Age: 17090 Day
  Sex: Female
  Weight: 104.8 kg

DRUGS (22)
  1. SEROQUEL [Suspect]
     Indication: BIPOLAR DISORDER
     Dosage: 200 MG -250 MG
     Route: 048
  2. SEROQUEL [Suspect]
     Indication: SCHIZOPHRENIA
     Dosage: 200 MG -250 MG
     Route: 048
  3. SEROQUEL [Suspect]
     Indication: DEPRESSION
     Dosage: 200 MG -250 MG
     Route: 048
  4. SEROQUEL [Suspect]
     Route: 048
     Dates: start: 20011018
  5. SEROQUEL [Suspect]
     Route: 048
     Dates: start: 20011018
  6. SEROQUEL [Suspect]
     Route: 048
     Dates: start: 20011018
  7. PAXIL [Concomitant]
     Route: 048
  8. GEODON [Concomitant]
     Route: 048
  9. GABITRIL [Concomitant]
     Route: 048
  10. FLUOXETINE [Concomitant]
     Route: 048
     Dates: start: 20030203
  11. AMBIEN [Concomitant]
     Route: 048
     Dates: start: 20030202
  12. ABILIFY [Concomitant]
     Route: 048
     Dates: start: 20030202
  13. MIRTAZAPINE [Concomitant]
     Route: 048
     Dates: start: 20030225
  14. CLINDAMYCIN [Concomitant]
     Route: 048
  15. IBUPROFEN [Concomitant]
     Route: 048
  16. PROCARDIA [Concomitant]
     Route: 048
     Dates: start: 20030324
  17. FLAGYL [Concomitant]
     Route: 048
     Dates: start: 20030324
  18. TYLENOL (CAPLET) [Concomitant]
     Route: 048
     Dates: start: 20030320
  19. GLYBURIDE [Concomitant]
     Route: 048
     Dates: start: 20030321
  20. GLUCOPHAGE [Concomitant]
     Route: 048
     Dates: start: 20030302
  21. REGULAR INSULIN [Concomitant]
     Dosage: 18 UNITS
     Route: 058
     Dates: start: 20030321
  22. RESTORIL [Concomitant]
     Route: 048
     Dates: start: 20030320

REACTIONS (4)
  - DIABETES MELLITUS [None]
  - DIABETIC KETOACIDOSIS [None]
  - HYPERGLYCAEMIA [None]
  - VISION BLURRED [None]
